FAERS Safety Report 17724266 (Version 7)
Quarter: 2020Q4

REPORT INFORMATION
  Report Type: Report from Study
  Country: US (occurrence: US)
  Receive Date: 20200429
  Receipt Date: 20201230
  Transmission Date: 20210113
  Serious: No
  Sender: FDA-Public Use
  Company Number: NVSC2020US115236

PATIENT
  Sex: Female

DRUGS (1)
  1. COSENTYX [Suspect]
     Active Substance: SECUKINUMAB
     Indication: PSORIATIC ARTHROPATHY
     Dosage: 150 MG, QMO
     Route: 058

REACTIONS (12)
  - Arthralgia [Unknown]
  - Oxygen saturation decreased [Unknown]
  - Pain [Unknown]
  - Vertigo [Unknown]
  - Myalgia [Unknown]
  - Pain in extremity [Unknown]
  - Drug ineffective [Unknown]
  - Spinal disorder [Unknown]
  - Back pain [Unknown]
  - Nausea [Unknown]
  - Sinusitis [Unknown]
  - Product dose omission issue [Unknown]
